FAERS Safety Report 9379032 (Version 2)
Quarter: 2013Q3

REPORT INFORMATION
  Report Type: Spontaneous
  Country: IT (occurrence: IT)
  Receive Date: 20130702
  Receipt Date: 20130814
  Transmission Date: 20140515
  Serious: Yes (Hospitalization)
  Sender: FDA-Public Use
  Company Number: IT-BRISTOL-MYERS SQUIBB COMPANY-19051739

PATIENT
  Age: 77 Year
  Sex: Male

DRUGS (1)
  1. MITOMYCIN-C [Suspect]
     Indication: BLADDER NEOPLASM
     Dosage: MOST RECENT DOSE : 13MAY13
     Route: 043
     Dates: start: 20130415, end: 20130513

REACTIONS (2)
  - Testicular necrosis [Recovering/Resolving]
  - Medication error [Unknown]
